FAERS Safety Report 16908055 (Version 1)
Quarter: 2019Q4

REPORT INFORMATION
  Report Type: Spontaneous
  Country: US (occurrence: US)
  Receive Date: 20191011
  Receipt Date: 20191011
  Transmission Date: 20200122
  Serious: No
  Sender: FDA-Public Use
  Company Number: US-IPSEN BIOPHARMACEUTICALS, INC.-2019-18535

PATIENT
  Sex: Female

DRUGS (2)
  1. SOMAVERT [Concomitant]
     Active Substance: PEGVISOMANT
  2. SOMATULINE DEPOT [Suspect]
     Active Substance: LANREOTIDE ACETATE
     Indication: ACROMEGALY
     Route: 058
     Dates: start: 20190309

REACTIONS (2)
  - Product dose omission [Unknown]
  - Memory impairment [Unknown]
